FAERS Safety Report 12950945 (Version 2)
Quarter: 2016Q4

REPORT INFORMATION
  Report Type: Report from Study
  Country: JP (occurrence: JP)
  Receive Date: 20161117
  Receipt Date: 20161208
  Transmission Date: 20170207
  Serious: Yes (Death, Life-Threatening, Hospitalization, Other)
  Sender: FDA-Public Use
  Company Number: JP-SUCAMPO PHARMACEUTICALS INC.-SPI201601027

PATIENT
  Age: 77 Year
  Sex: Male
  Weight: 53 kg

DRUGS (28)
  1. KATIV N [Concomitant]
     Dosage: UNK
     Route: 048
  2. UNKNOWN [Concomitant]
     Active Substance: UNSPECIFIED INGREDIENT
     Dosage: UNK
     Route: 048
     Dates: start: 20160828, end: 20160828
  3. UNKNOWN [Concomitant]
     Active Substance: UNSPECIFIED INGREDIENT
     Dosage: UNK
     Route: 048
     Dates: start: 20160924
  4. UNKNOWN [Concomitant]
     Active Substance: UNSPECIFIED INGREDIENT
     Dosage: UNK
     Route: 048
  5. UNKNOWN [Concomitant]
     Active Substance: UNSPECIFIED INGREDIENT
     Dosage: UNK
     Route: 048
  6. AMINOLEBAN [Concomitant]
     Active Substance: AMINO ACIDS
     Dosage: UNK
     Route: 042
     Dates: start: 20160826, end: 20160919
  7. SULBACILLIN [Concomitant]
     Active Substance: AMPICILLIN SODIUM\SULBACTAM SODIUM
     Dosage: UNK
     Route: 042
     Dates: start: 20160826, end: 20160901
  8. SEKIJUJI ALBUMIN [Concomitant]
     Dosage: UNK
     Route: 042
     Dates: start: 20160903, end: 20160929
  9. AMITIZA [Suspect]
     Active Substance: LUBIPROSTONE
     Indication: CONSTIPATION
     Dosage: 24 MCG, QD
     Route: 048
     Dates: start: 20160727, end: 20160930
  10. UNKNOWN [Concomitant]
     Active Substance: UNSPECIFIED INGREDIENT
     Dosage: UNK
     Route: 048
  11. SALOBEL [Concomitant]
     Active Substance: ALLOPURINOL
     Dosage: UNK
     Route: 048
  12. GLUACETO 35 [Concomitant]
     Indication: ELECTROLYTE SUBSTITUTION THERAPY
     Dosage: UNK
     Dates: start: 20160829, end: 20160829
  13. UNKNOWN [Concomitant]
     Active Substance: UNSPECIFIED INGREDIENT
     Indication: PROPHYLAXIS
     Dosage: UNK
     Route: 048
     Dates: start: 20160828, end: 20160903
  14. MONILAC [Concomitant]
     Active Substance: LACTULOSE
     Dosage: UNK
     Route: 048
  15. UNKNOWN [Concomitant]
     Active Substance: UNSPECIFIED INGREDIENT
     Dosage: UNK
     Route: 048
  16. UNKNOWN [Concomitant]
     Active Substance: UNSPECIFIED INGREDIENT
     Dosage: UNK
     Route: 048
  17. L CARTIN FF [Concomitant]
     Active Substance: LEVOCARNITINE
     Dosage: UNK
     Route: 048
  18. UNKNOWN [Concomitant]
     Active Substance: UNSPECIFIED INGREDIENT
     Indication: ANAESTHESIA PROCEDURE
     Dosage: UNK
     Dates: start: 20160829, end: 20160829
  19. LIVACT [Concomitant]
     Active Substance: AMINO ACIDS
     Dosage: UNK
     Route: 048
     Dates: start: 20160824, end: 20160920
  20. PROMAC [Concomitant]
     Active Substance: NITROFURANTOIN
     Dosage: UNK
     Route: 048
  21. MAGMITT [Concomitant]
     Active Substance: MAGNESIUM OXIDE
     Indication: CONSTIPATION
     Dosage: UNK
     Route: 048
  22. GLUACETO 35 [Concomitant]
     Dosage: UNK
     Dates: start: 20160903, end: 20160929
  23. ULTIVA [Concomitant]
     Active Substance: REMIFENTANIL HYDROCHLORIDE
     Indication: GENERAL ANAESTHESIA
     Dosage: UNK
     Route: 042
     Dates: start: 20160829, end: 20160829
  24. ACELIO [Concomitant]
     Active Substance: ACETAMINOPHEN
     Dosage: UNK
     Route: 042
     Dates: start: 20160829, end: 20160830
  25. AMINOLEBAN EN [Concomitant]
     Active Substance: UNSPECIFIED INGREDIENT
     Dosage: UNK
     Route: 048
     Dates: start: 20160921
  26. UNKNOWN [Concomitant]
     Active Substance: UNSPECIFIED INGREDIENT
     Dosage: UNK
     Route: 048
  27. NEO SYNESIN [Concomitant]
     Active Substance: PHENYLEPHRINE HYDROCHLORIDE
     Dosage: UNK
     Dates: start: 20160829, end: 20160829
  28. BFLUID [Concomitant]
     Active Substance: AMINO ACIDS\DEXTROSE\ELECTROLYTES NOS\VITAMINS
     Dosage: UNK
     Dates: start: 20160830, end: 20160830

REACTIONS (5)
  - Pyrexia [Recovered/Resolved]
  - Peritonitis bacterial [Not Recovered/Not Resolved]
  - Abdominal abscess [Not Recovered/Not Resolved]
  - Hypokalaemia [Recovered/Resolved]
  - Hepatorenal failure [Fatal]

NARRATIVE: CASE EVENT DATE: 20160804
